FAERS Safety Report 10878409 (Version 1)
Quarter: 2015Q1

REPORT INFORMATION
  Report Type: Spontaneous
  Country: US (occurrence: None)
  Receive Date: 20150224
  Receipt Date: 20150224
  Transmission Date: 20150721
  Serious: Yes (Hospitalization, Disabling, Other)
  Sender: FDA-Public Use
  Company Number: None

PATIENT
  Age: 37 Year
  Sex: Male
  Weight: 90.72 kg

DRUGS (1)
  1. INTERFERON INTRON [Suspect]
     Active Substance: INTERFERON ALFA-2B
     Indication: HEPATITIS C

REACTIONS (4)
  - Pancreatitis chronic [None]
  - Unevaluable event [None]
  - Bronchitis chronic [None]
  - Rheumatoid arthritis [None]
